FAERS Safety Report 7764839-7 (Version None)
Quarter: 2011Q3

REPORT INFORMATION
  Report Type: 
  Country: None (occurrence: None)
  Receive Date: 20110921
  Receipt Date: 20110915
  Transmission Date: 20111222
  Serious: Yes (Hospitalization, Other)
  Sender: FDA-Public Use
  Company Number: US-PFIZER INC-2011143871

PATIENT
  Sex: Female

DRUGS (4)
  1. CHANTIX [Suspect]
     Indication: SMOKING CESSATION THERAPY
     Dosage: STARTER PACK
     Dates: start: 20081117, end: 20081217
  2. CHANTIX [Suspect]
     Dosage: 1 MG
     Dates: start: 20090116, end: 20090216
  3. XANAX [Concomitant]
     Indication: ANXIETY
     Dosage: UNK
     Dates: start: 20000101
  4. XANAX [Concomitant]

REACTIONS (9)
  - ANXIETY [None]
  - PANIC ATTACK [None]
  - PSYCHOTIC DISORDER [None]
  - MAJOR DEPRESSION [None]
  - POST-TRAUMATIC STRESS DISORDER [None]
  - CONFUSIONAL STATE [None]
  - DELUSION [None]
  - PARANOIA [None]
  - NIGHTMARE [None]
